FAERS Safety Report 5265007-3 (Version None)
Quarter: 2007Q1

REPORT INFORMATION
  Report Type: 
  Country: None (occurrence: None)
  Receive Date: 20070314
  Receipt Date: 20070306
  Transmission Date: 20070707
  Serious: Yes (Hospitalization)
  Sender: FDA-Public Use
  Company Number: US-ROCHE-485763

PATIENT
  Age: 30 Year
  Sex: Female

DRUGS (3)
  1. PEGASYS [Suspect]
     Indication: DRUG USE FOR UNKNOWN INDICATION
     Dosage: REPORTED: BEEN ON THERAPY SINCE AUGUST OR SEPTEMBER, YEAR UNSPECIFED.
     Route: 065
  2. COPEGUS [Suspect]
     Indication: DRUG USE FOR UNKNOWN INDICATION
     Dosage: REPORTED: BEEN ON THERAPY SINCE AUGUST OR SEPTEMBER, YEAR UNSPECIFED.
     Route: 065
  3. RIBAVIRIN [Suspect]
     Indication: DRUG USE FOR UNKNOWN INDICATION
     Route: 065

REACTIONS (5)
  - COLD SWEAT [None]
  - HYPERHIDROSIS [None]
  - MALAISE [None]
  - SHOCK [None]
  - UNEVALUABLE EVENT [None]
